FAERS Safety Report 6368727-2 (Version None)
Quarter: 2009Q3

REPORT INFORMATION
  Report Type: 
  Country: None (occurrence: None)
  Receive Date: 20090917
  Receipt Date: 20090917
  Transmission Date: 20100115
  Serious: Yes (Disabling)
  Sender: FDA-Public Use
  Company Number: None

PATIENT
  Age: 87 Year
  Sex: Male
  Weight: 62.5964 kg

DRUGS (1)
  1. LEVAQUIN [Suspect]
     Indication: EPIDIDYMITIS
     Dosage: JULY 22, 2009 1 A DAY 10 DAYS 047
     Dates: start: 20090722

REACTIONS (4)
  - PAIN IN EXTREMITY [None]
  - TENDERNESS [None]
  - TENDONITIS [None]
  - TESTICULAR PAIN [None]
